FAERS Safety Report 21946683 (Version 1)
Quarter: 2023Q1

REPORT INFORMATION
  Report Type: Spontaneous
  Country: US (occurrence: US)
  Receive Date: 20230202
  Receipt Date: 20230202
  Transmission Date: 20230417
  Serious: No
  Sender: FDA-Public Use
  Company Number: US-INCYTE CORPORATION-2022IN009631

PATIENT

DRUGS (2)
  1. OPZELURA [Interacting]
     Active Substance: RUXOLITINIB PHOSPHATE
     Indication: Dyshidrotic eczema
     Dosage: UNK UNK, BID
     Route: 061
     Dates: start: 20220916
  2. OPZELURA [Interacting]
     Active Substance: RUXOLITINIB PHOSPHATE
     Dosage: UNK, BID, PIN TO HANDS
     Route: 061
     Dates: start: 20220916

REACTIONS (3)
  - Application site hypoaesthesia [Recovered/Resolved]
  - Drug interaction [Unknown]
  - Off label use [Unknown]

NARRATIVE: CASE EVENT DATE: 20220918
